FAERS Safety Report 12599921 (Version 1)
Quarter: 2016Q3

REPORT INFORMATION
  Report Type: Spontaneous
  Country: SI (occurrence: SI)
  Receive Date: 20160727
  Receipt Date: 20160727
  Transmission Date: 20161109
  Serious: Yes (Hospitalization)
  Sender: FDA-Public Use
  Company Number: SI-MYLANLABS-2016M1030431

PATIENT

DRUGS (3)
  1. OLANZAPINE. [Suspect]
     Active Substance: OLANZAPINE
     Indication: SCHIZOPHRENIA
     Dosage: 300MG; LONG-ACTING INJECTION
     Route: 065
  2. PALIPERIDONE. [Suspect]
     Active Substance: PALIPERIDONE
     Indication: SCHIZOPHRENIA
     Dosage: 6MG (2X3MG) FOLLOWED BY ACCIDENTAL DOSE OF 18MG (2X9MG)
     Route: 065
  3. PALIPERIDONE. [Suspect]
     Active Substance: PALIPERIDONE
     Dosage: 18MG (2X9MG)
     Route: 065

REACTIONS (9)
  - Accidental overdose [Recovering/Resolving]
  - Post-injection delirium sedation syndrome [Recovering/Resolving]
  - Tachycardia [Recovered/Resolved]
  - Drug administration error [Recovering/Resolving]
  - Dry skin [Unknown]
  - Hypohidrosis [Unknown]
  - Mydriasis [Unknown]
  - Dry mouth [Unknown]
  - Body temperature increased [Recovered/Resolved]
